FAERS Safety Report 21986421 (Version 1)
Quarter: 2023Q1

REPORT INFORMATION
  Report Type: Spontaneous
  Country: GB (occurrence: GB)
  Receive Date: 20230213
  Receipt Date: 20230213
  Transmission Date: 20230418
  Serious: Yes (Hospitalization, Other)
  Sender: FDA-Public Use
  Company Number: GB-SA-2023SA042138

PATIENT
  Age: 34 Year
  Sex: Female

DRUGS (1)
  1. ENOXAPARIN SODIUM [Suspect]
     Active Substance: ENOXAPARIN SODIUM
     Indication: Antiphospholipid syndrome

REACTIONS (10)
  - Cerebral thrombosis [Unknown]
  - Cardiac failure [Unknown]
  - Chest pain [Unknown]
  - Dyspnoea [Unknown]
  - Subdural haematoma [Unknown]
  - Headache [Unknown]
  - Nausea [Unknown]
  - Exposure during pregnancy [Unknown]
  - Confusional state [Unknown]
  - Pyrexia [Unknown]
